FAERS Safety Report 9138263 (Version 3)
Quarter: 2013Q2

REPORT INFORMATION
  Report Type: Spontaneous
  Country: JP (occurrence: JP)
  Receive Date: 20130305
  Receipt Date: 20130613
  Transmission Date: 20140414
  Serious: Yes (Other)
  Sender: FDA-Public Use
  Company Number: JP-009507513-1302JPN012139

PATIENT
  Age: 65 Year
  Sex: Female

DRUGS (2)
  1. ZETIA TABLETS 10MG [Suspect]
     Indication: HYPERCHOLESTEROLAEMIA
     Dosage: 10 MG, QD
     Route: 048
  2. [THERAPY UNSPECIFIED] [Concomitant]
     Dosage: DOSAGE IS UNCERTAIN DURING A DAY
     Route: 048

REACTIONS (2)
  - Eyelid ptosis [Unknown]
  - Exophthalmos [Recovering/Resolving]
